FAERS Safety Report 6789164-2 (Version None)
Quarter: 2010Q2

REPORT INFORMATION
  Report Type: 
  Country: None (occurrence: None)
  Receive Date: 20100623
  Receipt Date: 20080626
  Transmission Date: 20101027
  Serious: No
  Sender: FDA-Public Use
  Company Number: US-PFIZER INC-2008054728

PATIENT
  Sex: Female
  Weight: 81.818 kg

DRUGS (4)
  1. XALATAN [Suspect]
     Indication: INTRAOCULAR PRESSURE INCREASED
     Dates: start: 20080401
  2. PREMPRO [Concomitant]
  3. LORATADINE [Concomitant]
  4. NEXIUM [Concomitant]

REACTIONS (7)
  - DIARRHOEA [None]
  - EYE IRRITATION [None]
  - INFLUENZA LIKE ILLNESS [None]
  - MIGRAINE [None]
  - NAUSEA [None]
  - SENSATION OF HEAVINESS [None]
  - VOMITING [None]
